FAERS Safety Report 8131600-3 (Version None)
Quarter: 2012Q1

REPORT INFORMATION
  Report Type: 
  Country: None (occurrence: None)
  Receive Date: 20120103
  Receipt Date: 20110920
  Transmission Date: 20120608
  Serious: No
  Sender: FDA-Public Use
  Company Number: AE-2011-001200

PATIENT
  Age: 63 Year

DRUGS (1)
  1. INCIVEK [Suspect]
     Dosage: 750 MG (750 MG,1 IN 1)
     Dates: start: 20110721, end: 20110808

REACTIONS (5)
  - VISION BLURRED [None]
  - CORNEAL OPACITY [None]
  - RECTAL HAEMORRHAGE [None]
  - PROCTALGIA [None]
  - VISUAL ACUITY REDUCED [None]
